FAERS Safety Report 18340572 (Version 2)
Quarter: 2020Q4

REPORT INFORMATION
  Report Type: Report from Study
  Country: CO (occurrence: CO)
  Receive Date: 20201002
  Receipt Date: 20201127
  Transmission Date: 20210113
  Serious: Yes (Life-Threatening, Hospitalization)
  Sender: FDA-Public Use
  Company Number: NVSC2020CO266110

PATIENT
  Sex: Female

DRUGS (4)
  1. REVOLADE [Suspect]
     Active Substance: ELTROMBOPAG
     Indication: IMMUNE THROMBOCYTOPENIA
     Dosage: 50 MG, QD
     Route: 048
  2. REVOLADE [Suspect]
     Active Substance: ELTROMBOPAG
     Dosage: UNK
     Route: 065
  3. REVOLADE [Suspect]
     Active Substance: ELTROMBOPAG
     Dosage: 75 MG
     Route: 048
  4. REVOLADE [Suspect]
     Active Substance: ELTROMBOPAG
     Dosage: 100 MG, QD
     Route: 048

REACTIONS (2)
  - Near death experience [Unknown]
  - Prescribed overdose [Unknown]
